FAERS Safety Report 6540648-1 (Version None)
Quarter: 2010Q1

REPORT INFORMATION
  Report Type: 
  Country: None (occurrence: None)
  Receive Date: 20100118
  Receipt Date: 20100108
  Transmission Date: 20100710
  Serious: Yes (Hospitalization)
  Sender: FDA-Public Use
  Company Number: JP-ROCHE-679421

PATIENT
  Sex: Female

DRUGS (2)
  1. TOCILIZUMAB [Suspect]
     Indication: RHEUMATOID ARTHRITIS
     Route: 041
  2. METHOTREXATE [Concomitant]
     Dosage: DOSE FORM: ORAL FORMULATION (NOT OTHERWISE SPECIFIED).
     Route: 048

REACTIONS (1)
  - PYELONEPHRITIS [None]
